FAERS Safety Report 5026378-6 (Version None)
Quarter: 2006Q2

REPORT INFORMATION
  Report Type: 
  Country: None (occurrence: None)
  Receive Date: 20060426
  Receipt Date: 20060103
  Transmission Date: 20061013
  Serious: No
  Sender: FDA-Public Use
  Company Number: 2006002053

PATIENT
  Age: 49 Year
  Sex: Female
  Weight: 71.2147 kg

DRUGS (10)
  1. LYRICA [Suspect]
     Indication: CONVULSION
     Dosage: 75 MG (75 MG, 1 IN 1 D)
     Dates: start: 20051004
  2. LYRICA [Suspect]
     Indication: HEADACHE
     Dosage: 75 MG (75 MG, 1 IN 1 D)
     Dates: start: 20051004
  3. XANAX [Suspect]
     Indication: ANXIETY
     Dates: start: 20050501
  4. XANAX [Suspect]
     Indication: CONVULSION
     Dates: start: 20050501
  5. BUSPAR [Concomitant]
  6. ATENOLOL [Concomitant]
  7. TRILEPTAL [Concomitant]
  8. DEPAKOTE [Concomitant]
  9. LEXAPRO [Concomitant]
  10. ESTROPIPATE [Concomitant]

REACTIONS (7)
  - COORDINATION ABNORMAL [None]
  - DIZZINESS [None]
  - DRUG DISPENSING ERROR [None]
  - HALLUCINATION [None]
  - HYPERSOMNIA [None]
  - THINKING ABNORMAL [None]
  - VISION BLURRED [None]
